FAERS Safety Report 18597610 (Version 4)
Quarter: 2022Q2

REPORT INFORMATION
  Report Type: Report from Study
  Country: CL (occurrence: CL)
  Receive Date: 20201209
  Receipt Date: 20220422
  Transmission Date: 20220720
  Serious: Yes (Hospitalization, Other)
  Sender: FDA-Public Use
  Company Number: CL-BRISTOL-MYERS SQUIBB COMPANY-BMS-2020-103421

PATIENT
  Age: 70 Year
  Sex: Male
  Weight: 64 kg

DRUGS (11)
  1. LINRODOSTAT MESYLATE [Suspect]
     Active Substance: LINRODOSTAT MESYLATE
     Indication: Bladder cancer
     Dosage: 1 DF= 1 TABLET?LASE DOSE: 01-DEC-2020
     Route: 065
     Dates: start: 20201103
  2. NIVOLUMAB [Suspect]
     Active Substance: NIVOLUMAB
     Indication: Bladder cancer
     Dosage: LAST DOSE:25-NOV-2020
     Route: 042
     Dates: start: 20201103
  3. CISPLATIN [Suspect]
     Active Substance: CISPLATIN
     Indication: Bladder cancer
     Dosage: LAST DOSE: 24-NOV-2020
     Route: 065
     Dates: start: 20201103
  4. GEMCITABINE HYDROCHLORIDE [Suspect]
     Active Substance: GEMCITABINE HYDROCHLORIDE
     Indication: Bladder cancer
     Dosage: LAST DOSE: 24-NOV-2020
     Route: 065
     Dates: start: 20201103
  5. AMLODIPINE [Concomitant]
     Active Substance: AMLODIPINE BESYLATE
     Indication: Product used for unknown indication
     Route: 065
     Dates: start: 20201109
  6. ACETOMINOFEN [Concomitant]
     Indication: Product used for unknown indication
     Route: 048
     Dates: start: 20201111, end: 20201217
  7. ACETOMINOFEN [Concomitant]
     Indication: Headache
  8. KETOROLACO TROMETAMOL [Concomitant]
     Indication: Headache
     Dosage: 30 MILLIGRAM
     Route: 048
     Dates: start: 20201130, end: 20201217
  9. ATORVASTATIN [Concomitant]
     Active Substance: ATORVASTATIN
     Indication: Product used for unknown indication
     Route: 065
     Dates: start: 20201202
  10. ASPIRIN [Concomitant]
     Active Substance: ASPIRIN
     Indication: Product used for unknown indication
     Route: 048
     Dates: start: 20201202
  11. ENOXAPARIN [Concomitant]
     Active Substance: ENOXAPARIN
     Indication: Product used for unknown indication
     Route: 058
     Dates: start: 20201202, end: 20201205

REACTIONS (1)
  - Cerebrovascular accident [Recovered/Resolved]

NARRATIVE: CASE EVENT DATE: 20201202
